FAERS Safety Report 9059265 (Version 3)
Quarter: 2013Q2

REPORT INFORMATION
  Report Type: Report from Study
  Country: DE (occurrence: DE)
  Receive Date: 20130211
  Receipt Date: 20130616
  Transmission Date: 20140414
  Serious: Yes (Hospitalization)
  Sender: FDA-Public Use
  Company Number: DE-UCBSA-077681

PATIENT
  Sex: Female

DRUGS (5)
  1. VIMPAT [Suspect]
     Indication: EPILEPSY
     Route: 048
     Dates: start: 20101231, end: 20110126
  2. VIMPAT [Suspect]
     Indication: EPILEPSY
     Dosage: DAILY DOSE : 50 MG
     Dates: start: 20101226, end: 201012
  3. LEVETIRACETAM [Concomitant]
     Indication: EPILEPSY
     Route: 048
  4. ZONISAMIDE [Concomitant]
     Indication: EPILEPSY
     Dosage: 300 MG
  5. VALPROATE [Concomitant]
     Indication: EPILEPSY
     Dosage: DAILY DOSE: 2000 MG

REACTIONS (2)
  - Convulsion [Recovered/Resolved]
  - Gait disturbance [Recovering/Resolving]
